FAERS Safety Report 10820406 (Version 1)
Quarter: 2015Q1

REPORT INFORMATION
  Report Type: Spontaneous
  Country: IT (occurrence: None)
  Receive Date: 20150213
  Receipt Date: 20150213
  Transmission Date: 20150721
  Serious: Yes (Hospitalization)
  Sender: FDA-Public Use
  Company Number: DEP_02540_2015

PATIENT
  Sex: Female

DRUGS (1)
  1. PECFENT [Suspect]
     Active Substance: FENTANYL CITRATE
     Indication: PRODUCT USED FOR UNKNOWN INDICATION
     Dosage: 100 MCG/1 BOTTLE, DF)

REACTIONS (3)
  - Bradyphrenia [None]
  - Sopor [None]
  - Bradykinesia [None]

NARRATIVE: CASE EVENT DATE: 20150115
